FAERS Safety Report 10346655 (Version 1)
Quarter: 2014Q3

REPORT INFORMATION
  Report Type: Spontaneous
  Country: US (occurrence: US)
  Receive Date: 20140729
  Receipt Date: 20140729
  Transmission Date: 20150326
  Serious: No
  Sender: FDA-Public Use
  Company Number: US-BIOGENIDEC-2014BI072127

PATIENT
  Age: 63 Year
  Sex: Female

DRUGS (2)
  1. AVONEX [Suspect]
     Active Substance: INTERFERON BETA-1A
     Indication: MULTIPLE SCLEROSIS
     Route: 030
     Dates: end: 2013
  2. AVONEX [Suspect]
     Active Substance: INTERFERON BETA-1A
     Indication: MULTIPLE SCLEROSIS
     Route: 030
     Dates: end: 2014

REACTIONS (5)
  - Nuclear magnetic resonance imaging abnormal [Unknown]
  - Memory impairment [Not Recovered/Not Resolved]
  - Visual impairment [Not Recovered/Not Resolved]
  - Diabetes mellitus [Not Recovered/Not Resolved]
  - Cataract [Not Recovered/Not Resolved]

NARRATIVE: CASE EVENT DATE: 2014
